FAERS Safety Report 10494719 (Version 2)
Quarter: 2014Q4

REPORT INFORMATION
  Report Type: Report from Study
  Country: CA (occurrence: CA)
  Receive Date: 20141003
  Receipt Date: 20141024
  Transmission Date: 20150528
  Serious: Yes (Other)
  Sender: FDA-Public Use
  Company Number: CA-ABBVIE-14P-028-1289124-00

PATIENT
  Age: 77 Year
  Sex: Male
  Weight: 70 kg

DRUGS (1)
  1. LUPRON DEPOT [Suspect]
     Active Substance: LEUPROLIDE ACETATE
     Indication: PROSTATE CANCER
     Route: 030
     Dates: start: 2002

REACTIONS (4)
  - Bladder obstruction [Not Recovered/Not Resolved]
  - Urethral stenosis [Unknown]
  - Radiotherapy to prostate [Unknown]
  - Urethral disorder [Not Recovered/Not Resolved]

NARRATIVE: CASE EVENT DATE: 20140617
